FAERS Safety Report 17193448 (Version 1)
Quarter: 2019Q4

REPORT INFORMATION
  Report Type: Spontaneous
  Country: FI (occurrence: FI)
  Receive Date: 20191223
  Receipt Date: 20191223
  Transmission Date: 20200122
  Serious: Yes (Other)
  Sender: FDA-Public Use
  Company Number: FI-009507513-1912FIN009282

PATIENT
  Age: 70 Year
  Sex: Female

DRUGS (5)
  1. SIMVASTATIN. [Suspect]
     Active Substance: SIMVASTATIN
     Dosage: 20 MILLIGRAM, DISCONTINUED A MONTH EARLIER (UNKNOWN DATE)
     Route: 048
  2. RAMIPRIL. [Concomitant]
     Active Substance: RAMIPRIL
     Dosage: THE DOSE WAS HALVED: 5 MG
  3. PANTOPRAZOLE [Concomitant]
     Active Substance: PANTOPRAZOLE
     Dosage: 20 MILLIGRAM
  4. RAMIPRIL. [Concomitant]
     Active Substance: RAMIPRIL
     Dosage: 10 MILLIGRAM
  5. ASPIRIN. [Concomitant]
     Active Substance: ASPIRIN
     Dosage: 100 MILLIGRAM

REACTIONS (14)
  - Weight increased [Unknown]
  - Blood cholesterol increased [Unknown]
  - Skin warm [Unknown]
  - Anaemia [Unknown]
  - Asthenia [Unknown]
  - Blood creatine phosphokinase abnormal [Unknown]
  - Haemoglobin abnormal [Unknown]
  - Gastric ulcer [Recovered/Resolved]
  - Hypertension [Unknown]
  - Peripheral arterial occlusive disease [Unknown]
  - Myalgia [Unknown]
  - Blood creatinine increased [Unknown]
  - Peripheral swelling [Unknown]
  - Intermittent claudication [Unknown]
